FAERS Safety Report 7282911-5 (Version None)
Quarter: 2011Q1

REPORT INFORMATION
  Report Type: 
  Country: None (occurrence: None)
  Receive Date: 20110128
  Receipt Date: 20110121
  Transmission Date: 20110831
  Serious: Yes (Other)
  Sender: FDA-Public Use
  Company Number: 1000018285

PATIENT
  Age: 65 Year
  Sex: Male

DRUGS (4)
  1. LEXAPRO [Suspect]
     Indication: DEPRESSION
     Dosage: 20 MG (20 MG, 1 IN 1 D), ORAL
     Route: 048
     Dates: start: 20101210
  2. NORVASC [Concomitant]
  3. LISINOPRIL [Concomitant]
  4. TRILIPIX  (FENOFIBRIC ACID) (FENOFIBRIC ACID) [Concomitant]

REACTIONS (6)
  - MUSCLE SPASMS [None]
  - UPPER LIMB FRACTURE [None]
  - FALL [None]
  - DECREASED INTEREST [None]
  - CONFUSIONAL STATE [None]
  - DISTURBANCE IN ATTENTION [None]
